FAERS Safety Report 5862167-8 (Version None)
Quarter: 2008Q3

REPORT INFORMATION
  Report Type: 
  Country: None (occurrence: None)
  Receive Date: 20080818
  Receipt Date: 20080626
  Transmission Date: 20090109
  Serious: No
  Sender: FDA-Public Use
  Company Number: WAES 0806USA08848

PATIENT
  Sex: Male

DRUGS (3)
  1. JANUVIA [Suspect]
     Indication: BLOOD GLUCOSE
     Dosage: PO
     Route: 048
  2. JANUMET [Suspect]
     Indication: BLOOD GLUCOSE
     Dosage: PO
     Route: 048
  3. GLUCOTROL [Concomitant]

REACTIONS (1)
  - DYSGEUSIA [None]
